FAERS Safety Report 5501832-9 (Version None)
Quarter: 2007Q4

REPORT INFORMATION
  Report Type: 
  Country: None (occurrence: None)
  Receive Date: 20071030
  Receipt Date: 20061106
  Transmission Date: 20080405
  Serious: No
  Sender: FDA-Public Use
  Company Number: A0626327A

PATIENT
  Sex: Female

DRUGS (3)
  1. SEREVENT [Suspect]
     Route: 055
     Dates: start: 20061026
  2. NEBULIZER [Concomitant]
  3. INHALERS [Concomitant]

REACTIONS (2)
  - INCREASED UPPER AIRWAY SECRETION [None]
  - PHARMACEUTICAL PRODUCT COMPLAINT [None]
